FAERS Safety Report 8505803-X (Version None)
Quarter: 2012Q3

REPORT INFORMATION
  Report Type: 
  Country: None (occurrence: None)
  Receive Date: 20120712
  Receipt Date: 20120629
  Transmission Date: 20120928
  Serious: Yes (Other)
  Sender: FDA-Public Use
  Company Number: AU-009507513-1207AUS000774

PATIENT

DRUGS (1)
  1. VICTRELIS [Suspect]
     Dosage: UNK
     Dates: start: 20120301, end: 20120501

REACTIONS (2)
  - DRUG INEFFECTIVE [None]
  - HEPATIC FAILURE [None]
